FAERS Safety Report 9704042 (Version 1)
Quarter: 2013Q4

REPORT INFORMATION
  Report Type: Spontaneous
  Country: US (occurrence: US)
  Receive Date: 20131122
  Receipt Date: 20131122
  Transmission Date: 20140711
  Serious: No
  Sender: FDA-Public Use
  Company Number: US-009507513-1311USA001554

PATIENT
  Sex: Female

DRUGS (2)
  1. NEXPLANON [Suspect]
     Indication: CONTRACEPTION
     Dosage: STANDARD DOSE
     Route: 059
  2. DERMATOLOGIC (UNSPECIFIED) [Suspect]

REACTIONS (2)
  - Alopecia [Recovering/Resolving]
  - Acne cystic [Recovering/Resolving]
